FAERS Safety Report 7201276-8 (Version None)
Quarter: 2010Q4

REPORT INFORMATION
  Report Type: 
  Country: None (occurrence: None)
  Receive Date: 20101229
  Receipt Date: 20101215
  Transmission Date: 20110411
  Serious: Yes (Other)
  Sender: FDA-Public Use
  Company Number: GB-JNJFOC-20101208013

PATIENT
  Age: 55 Year
  Sex: Female

DRUGS (5)
  1. MICONAZOLE [Suspect]
     Route: 067
  2. MICONAZOLE [Suspect]
     Indication: ILL-DEFINED DISORDER
     Dosage: ON THE THIRD DAY OF USING 200-MG MICONAZOLE PESSARIES
     Route: 067
  3. MICONAZOLE [Suspect]
     Route: 067
  4. MICONAZOLE [Suspect]
     Route: 067
  5. WARFARIN [Interacting]
     Indication: ILL-DEFINED DISORDER

REACTIONS (3)
  - CONTUSION [None]
  - DRUG INTERACTION [None]
  - INTERNATIONAL NORMALISED RATIO INCREASED [None]
